FAERS Safety Report 10549128 (Version 1)
Quarter: 2014Q4

REPORT INFORMATION
  Report Type: Spontaneous
  Country: US (occurrence: None)
  Receive Date: 20141016
  Receipt Date: 20141016
  Transmission Date: 20150529
  Serious: No
  Sender: FDA-Public Use
  Company Number: CABO-14004377

PATIENT
  Age: 58 Year
  Sex: Male

DRUGS (2)
  1. ZYTIGA (ABIRATERONE ACETATE) [Concomitant]
  2. COMETRIQ [Suspect]
     Active Substance: CABOZANTINIB S-MALATE
     Indication: PROSTATE CANCER
     Route: 048
     Dates: start: 20140401, end: 20140512

REACTIONS (8)
  - Blister [None]
  - Dehydration [None]
  - Thirst [None]
  - Pain in extremity [None]
  - Activities of daily living impaired [None]
  - Erythema [None]
  - Memory impairment [None]
  - Off label use [None]

NARRATIVE: CASE EVENT DATE: 2014
